FAERS Safety Report 13099685 (Version 2)
Quarter: 2017Q4

REPORT INFORMATION
  Report Type: Spontaneous
  Country: AR (occurrence: AR)
  Receive Date: 20170110
  Receipt Date: 20171202
  Transmission Date: 20180320
  Serious: Yes (Other)
  Sender: FDA-Public Use
  Company Number: AR-AMGEN-ARGSP2016166178

PATIENT
  Age: 74 Year
  Sex: Female

DRUGS (1)
  1. ENBREL [Suspect]
     Active Substance: ETANERCEPT
     Indication: PSORIASIS
     Dosage: 50 MG, (EVERY 20 DAYS/EVERY 15 DAYS)
     Route: 065
     Dates: start: 20090731

REACTIONS (16)
  - Haemorrhage [Recovering/Resolving]
  - Wrong technique in product usage process [Unknown]
  - Infarction [Unknown]
  - Arterial rupture [Recovering/Resolving]
  - Condition aggravated [Recovering/Resolving]
  - Urticaria [Unknown]
  - Affect lability [Unknown]
  - Eye disorder [Not Recovered/Not Resolved]
  - Injection site erythema [Not Recovered/Not Resolved]
  - Eye disorder [Unknown]
  - Visual impairment [Unknown]
  - Fatigue [Unknown]
  - Road traffic accident [Recovered/Resolved]
  - Oral disorder [Not Recovered/Not Resolved]
  - Loose tooth [Recovered/Resolved]
  - Psychological trauma [Unknown]

NARRATIVE: CASE EVENT DATE: 2014
